FAERS Safety Report 6955951-0 (Version None)
Quarter: 2010Q3

REPORT INFORMATION
  Report Type: 
  Country: None (occurrence: None)
  Receive Date: 20100830
  Receipt Date: 20100820
  Transmission Date: 20110219
  Serious: Yes (Death)
  Sender: FDA-Public Use
  Company Number: US-MERCK-1008USA01417

PATIENT

DRUGS (2)
  1. SINGULAIR [Suspect]
     Indication: ASTHMA
     Route: 048
  2. EPINEPHRINE [Concomitant]
     Route: 065

REACTIONS (2)
  - DEATH [None]
  - TOOTH DISORDER [None]
